FAERS Safety Report 8118021-4 (Version None)
Quarter: 2012Q1

REPORT INFORMATION
  Report Type: 
  Country: None (occurrence: None)
  Receive Date: 20120201
  Receipt Date: 20111220
  Transmission Date: 20120608
  Serious: Yes (Life-Threatening, Hospitalization, Disabling, Other)
  Sender: FDA-Public Use
  Company Number: 2011002963

PATIENT
  Age: 66 Year
  Sex: Male

DRUGS (3)
  1. LEFLUNOMIDE [Suspect]
     Indication: PRODUCT USED FOR UNKNOWN INDICATION
     Dosage: 10 MG (10 MG, 1 IN 1 D), ORAL
     Route: 048
     Dates: start: 20110427, end: 20110603
  2. ERYTHROMYCIN [Suspect]
     Indication: PRODUCT USED FOR UNKNOWN INDICATION
     Dosage: 1000 MG 9250 MG, 4 IN 1 D), ORAL
     Route: 048
     Dates: start: 20110524, end: 20110602
  3. METHOTREXATE [Suspect]
     Dosage: (20 MG, CYCLICAL), ORAL
     Route: 048
     Dates: end: 20110516

REACTIONS (12)
  - INFARCTION [None]
  - LETHARGY [None]
  - VASCULITIC RASH [None]
  - ERYTHEMA MULTIFORME [None]
  - GENERAL PHYSICAL HEALTH DETERIORATION [None]
  - RENAL FAILURE ACUTE [None]
  - WHITE BLOOD CELL COUNT DECREASED [None]
  - DYSPNOEA [None]
  - HEPATIC FAILURE [None]
  - RESPIRATORY FAILURE [None]
  - COAGULOPATHY [None]
  - DELIRIUM [None]
